FAERS Safety Report 7414829-9 (Version None)
Quarter: 2011Q2

REPORT INFORMATION
  Report Type: 
  Country: None (occurrence: None)
  Receive Date: 20110405
  Receipt Date: 20110330
  Transmission Date: 20111010
  Serious: Yes (Other)
  Sender: FDA-Public Use
  Company Number: 1000019691

PATIENT
  Age: 70 Year
  Sex: Female

DRUGS (3)
  1. BYSTOLIC [Suspect]
     Indication: HYPERTENSION
     Dosage: 5 MG (5 MG,  1 IN 1 D) , ORAL
     Route: 048
     Dates: start: 20110309
  2. LISINOPRIL (LISINOPRIL) (TABLETS) (LISINOPRIL) [Concomitant]
  3. PROZAC (FLUOXETINE) (TABLETS)(FLUOXETINE) [Concomitant]

REACTIONS (4)
  - HEART RATE DECREASED [None]
  - CARDIAC FAILURE CONGESTIVE [None]
  - BLOOD PRESSURE INCREASED [None]
  - DYSPNOEA [None]
